FAERS Safety Report 5960866-0 (Version None)
Quarter: 2008Q4

REPORT INFORMATION
  Report Type: 
  Country: None (occurrence: None)
  Receive Date: 20081118
  Receipt Date: 20081106
  Transmission Date: 20090506
  Serious: No
  Sender: FDA-Public Use
  Company Number: 2008-186013-NL

PATIENT
  Age: 63 Year
  Sex: Female

DRUGS (7)
  1. DEXAMETHASONE [Suspect]
     Dosage: 20 MG
  2. BORTEZOMIB (BATCH #: 14698, 14702, 14733, 13743, 14813) [Suspect]
     Indication: MYELOMA RECURRENCE
     Dosage: 1.3 MG/M2/DF, INTRAVENOUS (NOS)
     Route: 042
     Dates: start: 20080512
  3. ONDANSETRON [Suspect]
     Dosage: 8 MG BID, ORAL
     Route: 048
  4. ACYCLOVIR [Concomitant]
  5. FOLIC ACAID [Concomitant]
  6. METOCLOPRAMIDE [Concomitant]
  7. MORPHINE SULFATE [Concomitant]

REACTIONS (2)
  - ALANINE AMINOTRANSFERASE INCREASED [None]
  - BLOOD ALKALINE PHOSPHATASE INCREASED [None]
